FAERS Safety Report 9782921 (Version 1)
Quarter: 2013Q4

REPORT INFORMATION
  Report Type: Spontaneous
  Country: US (occurrence: None)
  Receive Date: 20131223
  Receipt Date: 20131223
  Transmission Date: 20140711
  Serious: Yes (Hospitalization)
  Sender: FDA-Public Use
  Company Number: EUS-2011-00777

PATIENT
  Age: 11 Year
  Sex: Male

DRUGS (16)
  1. ERWINASE (ASPARAGINASE) [Suspect]
     Indication: ACUTE LYMPHOCYTIC LEUKAEMIA
     Dosage: (34000 IU, ON 22, 24, 26, 28, 30 + 01 NOV 2010)
     Route: 030
     Dates: start: 20101022, end: 20101101
  2. HYDROCORTISONE [Concomitant]
  3. ACETAZOLAMIDE [Concomitant]
  4. ACYCLOVIR [Concomitant]
  5. BACTRIM (SULFAMETHOXAZOLE) [Concomitant]
  6. FAMOTIDINE [Concomitant]
  7. FENTANYL [Concomitant]
  8. HYDRALIZINE [Concomitant]
  9. NYSTATIN [Concomitant]
  10. OXYCODONE [Concomitant]
  11. RANATIDINE [Concomitant]
  12. SODIUM BICARBONATE [Concomitant]
  13. ZOFRAN (ONDANSETRON) [Concomitant]
  14. CLOTRIMAZOLE [Concomitant]
  15. SENOKOT (SENNA ALEXANDRINA) [Concomitant]
  16. DEXAMETHASONE [Concomitant]

REACTIONS (3)
  - Hyperglycaemia [None]
  - Pancreatitis [None]
  - Hypersensitivity [None]
